FAERS Safety Report 10412817 (Version 1)
Quarter: 2014Q3

REPORT INFORMATION
  Report Type: Spontaneous
  Country: US (occurrence: None)
  Receive Date: 20140825
  Receipt Date: 20140825
  Transmission Date: 20150326
  Serious: Yes (Other)
  Sender: FDA-Public Use
  Company Number: AUR-APL-2014-08944

PATIENT
  Age: 43 Year
  Sex: Male

DRUGS (1)
  1. SIMVASTATIN 20MG (SIMVASTATIN) UNKNOWN, 20MG [Suspect]
     Active Substance: SIMVASTATIN
     Indication: HYPERLIPIDAEMIA

REACTIONS (3)
  - Drug-induced liver injury [None]
  - Alanine aminotransferase increased [None]
  - Blood alkaline phosphatase increased [None]
